FAERS Safety Report 8186466-2 (Version None)
Quarter: 2012Q1

REPORT INFORMATION
  Report Type: 
  Country: None (occurrence: None)
  Receive Date: 20120302
  Receipt Date: 20120302
  Transmission Date: 20120608
  Serious: Yes (Hospitalization)
  Sender: FDA-Public Use
  Company Number: None

PATIENT
  Age: 70 Year
  Sex: Female
  Weight: 102.3 kg

DRUGS (2)
  1. CARBOPLATIN [Suspect]
     Indication: CHEMOTHERAPY
     Dosage: 791MG Q3W IV
     Route: 042
     Dates: start: 20120102
  2. CARBOPLATIN [Suspect]
     Indication: CHEMOTHERAPY
     Dosage: 791MG Q3W IV
     Route: 042
     Dates: start: 20120102

REACTIONS (5)
  - CLOSTRIDIAL INFECTION [None]
  - HYPOMAGNESAEMIA [None]
  - DIARRHOEA [None]
  - VOMITING [None]
  - HYPOKALAEMIA [None]
